FAERS Safety Report 5127864-0 (Version None)
Quarter: 2006Q4

REPORT INFORMATION
  Report Type: 
  Country: None (occurrence: None)
  Receive Date: 20061016
  Receipt Date: 20060724
  Transmission Date: 20070319
  Serious: Yes (Hospitalization)
  Sender: FDA-Public Use
  Company Number: 2006UW14994

PATIENT
  Age: 48 Year
  Sex: Male

DRUGS (4)
  1. CRESTOR [Suspect]
     Route: 048
     Dates: end: 20060315
  2. GLUCOPHAGE [Concomitant]
  3. LISINOPRIL [Concomitant]
  4. IBUPROFEN [Concomitant]
     Indication: BACK PAIN

REACTIONS (5)
  - ANURIA [None]
  - BACK PAIN [None]
  - BLOOD CREATININE INCREASED [None]
  - DIALYSIS [None]
  - RHABDOMYOLYSIS [None]
